FAERS Safety Report 4767522-5 (Version None)
Quarter: 2005Q3

REPORT INFORMATION
  Report Type: 
  Country: None (occurrence: None)
  Receive Date: 20050909
  Receipt Date: 20050830
  Transmission Date: 20060218
  Serious: Yes (Hospitalization)
  Sender: FDA-Public Use
  Company Number: CERZ-10853

PATIENT
  Age: 76 Year
  Sex: Male
  Weight: 111.5849 kg

DRUGS (5)
  1. CEREZYME [Suspect]
     Indication: GAUCHER'S DISEASE
     Dates: start: 19940101
  2. AVANDIA [Concomitant]
  3. LISINOPRIL [Concomitant]
  4. TRICOR [Concomitant]
  5. GLYBURIDE [Concomitant]

REACTIONS (5)
  - DIABETES MELLITUS NON-INSULIN-DEPENDENT [None]
  - GOUT [None]
  - HYPOTHYROIDISM [None]
  - PROSTATE CANCER STAGE I [None]
  - PULMONARY EMBOLISM [None]
